FAERS Safety Report 20440801 (Version 2)
Quarter: 2022Q2

REPORT INFORMATION
  Report Type: Spontaneous
  Country: BR (occurrence: BR)
  Receive Date: 20220207
  Receipt Date: 20220504
  Transmission Date: 20220721
  Serious: Yes (Other)
  Sender: FDA-Public Use
  Company Number: BR-ZAMBON-202200239BRA

PATIENT
  Age: 64 Year

DRUGS (1)
  1. XADAGO [Suspect]
     Active Substance: SAFINAMIDE MESYLATE
     Indication: Parkinson^s disease
     Dosage: NOT PROVIDED

REACTIONS (4)
  - Parkinson^s disease [Unknown]
  - Gastric disorder [Unknown]
  - Impaired driving ability [Unknown]
  - Diplopia [Unknown]
